FAERS Safety Report 4736131-6 (Version None)
Quarter: 2005Q3

REPORT INFORMATION
  Report Type: 
  Country: None (occurrence: None)
  Receive Date: 20050728
  Receipt Date: 20050412
  Transmission Date: 20060218
  Serious: No
  Sender: FDA-Public Use
  Company Number: 200418584US

PATIENT
  Sex: Male

DRUGS (1)
  1. TELITHROMYCIN (KETEK) TABLETS [Suspect]
     Indication: RHINITIS
     Dosage: 400 (2 TABLETS) MG QD PO
     Route: 048

REACTIONS (7)
  - CHEST PAIN [None]
  - DIZZINESS [None]
  - DRUG INEFFECTIVE [None]
  - DYSPNOEA [None]
  - EYE SWELLING [None]
  - OCULAR HYPERAEMIA [None]
  - VISUAL DISTURBANCE [None]
